FAERS Safety Report 4300019-5 (Version None)
Quarter: 2004Q1

REPORT INFORMATION
  Report Type: 
  Country: None (occurrence: None)
  Receive Date: 20040218
  Receipt Date: 20040204
  Transmission Date: 20041129
  Serious: Yes (Death, Other)
  Sender: FDA-Public Use
  Company Number: JP_040202601

PATIENT
  Age: 61 Year
  Sex: Female

DRUGS (2)
  1. GEMZAR [Suspect]
  2. TAXOTERE [Concomitant]

REACTIONS (2)
  - GENERALISED OEDEMA [None]
  - HEPATIC FAILURE [None]
